FAERS Safety Report 16414767 (Version 8)
Quarter: 2023Q2

REPORT INFORMATION
  Report Type: Spontaneous
  Country: US (occurrence: US)
  Receive Date: 20190611
  Receipt Date: 20230420
  Transmission Date: 20230722
  Serious: Yes (Other)
  Sender: FDA-Public Use
  Company Number: US-PFIZER INC-2019239696

PATIENT
  Age: 77 Year
  Sex: Female

DRUGS (1)
  1. PREMARIN [Suspect]
     Active Substance: ESTROGENS, CONJUGATED
     Dosage: UNK
     Route: 067

REACTIONS (10)
  - Dementia [Unknown]
  - Fall [Unknown]
  - Diabetes mellitus [Unknown]
  - Illness [Unknown]
  - Back disorder [Unknown]
  - Infection [Unknown]
  - Joint injury [Unknown]
  - Vision blurred [Unknown]
  - Blood glucose decreased [Unknown]
  - Hypersensitivity [Unknown]

NARRATIVE: CASE EVENT DATE: 20210101
